FAERS Safety Report 22086204 (Version 1)
Quarter: 2023Q1

REPORT INFORMATION
  Report Type: Spontaneous
  Country: US (occurrence: US)
  Receive Date: 20230310
  Receipt Date: 20230310
  Transmission Date: 20230417
  Serious: No
  Sender: FDA-Public Use
  Company Number: US-BRISTOL-MYERS SQUIBB COMPANY-2023-035315

PATIENT
  Age: 82 Year
  Sex: Male
  Weight: 60.33 kg

DRUGS (1)
  1. POMALYST [Suspect]
     Active Substance: POMALIDOMIDE
     Indication: Plasmacytoma
     Dosage: 21D ON 7D OFF
     Route: 048
     Dates: end: 20230309

REACTIONS (2)
  - White blood cell count decreased [Unknown]
  - Off label use [Unknown]
